FAERS Safety Report 6329858-6 (Version None)
Quarter: 2009Q3

REPORT INFORMATION
  Report Type: 
  Country: None (occurrence: None)
  Receive Date: 20090826
  Receipt Date: 20090817
  Transmission Date: 20100115
  Serious: Yes (Other)
  Sender: FDA-Public Use
  Company Number: PHHY2009IE35253

PATIENT
  Sex: Female

DRUGS (1)
  1. SYNTOMETRINE [Suspect]

REACTIONS (2)
  - BRONCHOSPASM [None]
  - DYSPNOEA [None]
